FAERS Safety Report 9246411 (Version 1)
Quarter: 2013Q2

REPORT INFORMATION
  Report Type: Spontaneous
  Country: US (occurrence: US)
  Receive Date: 20130422
  Receipt Date: 20130422
  Transmission Date: 20140414
  Serious: Yes (Other)
  Sender: FDA-Public Use
  Company Number: US-BAYER-2013-047480

PATIENT
  Age: 14 Year
  Sex: Male
  Weight: 60.32 kg

DRUGS (1)
  1. ALEVE CAPLET [Suspect]
     Indication: CHEST PAIN
     Dosage: 1 DF, ONCE
     Route: 048
     Dates: start: 20130409, end: 20130409

REACTIONS (1)
  - Heart rate decreased [Recovered/Resolved]
